FAERS Safety Report 14564488 (Version 1)
Quarter: 2018Q1

REPORT INFORMATION
  Report Type: Spontaneous
  Country: US (occurrence: US)
  Receive Date: 20180222
  Receipt Date: 20180222
  Transmission Date: 20180509
  Serious: Yes (Hospitalization)
  Sender: FDA-Public Use
  Company Number: US-FRESENIUS MEDICAL CARE RENAL THERAPIES GROUP-FMC-1802-000352

PATIENT
  Age: 56 Year
  Sex: Male
  Weight: 123 kg

DRUGS (13)
  1. DELFLEX [Suspect]
     Active Substance: CALCIUM CHLORIDE\DEXTROSE\MAGNESIUM CHLORIDE\SODIUM CHLORIDE\SODIUM LACTATE
     Indication: END STAGE RENAL DISEASE
     Dosage: 4 EXCHANGES WITH  FILL VOLUME 2000ML AND LAST FILL VOLUME 300ML
     Route: 033
     Dates: start: 20170918
  2. LOSARTAN. [Concomitant]
     Active Substance: LOSARTAN
  3. GABAPENTIN. [Concomitant]
     Active Substance: GABAPENTIN
  4. CARVEDILOL. [Concomitant]
     Active Substance: CARVEDILOL
  5. OMEPRAZOLE. [Concomitant]
     Active Substance: OMEPRAZOLE
  6. ATORVASTATIN [Concomitant]
     Active Substance: ATORVASTATIN
  7. ALLOPURINOL. [Concomitant]
     Active Substance: ALLOPURINOL
  8. FUROSEMIDE. [Concomitant]
     Active Substance: FUROSEMIDE
  9. SENSIPAR [Concomitant]
     Active Substance: CINACALCET HYDROCHLORIDE
  10. CALCIUM ACETATE. [Concomitant]
     Active Substance: CALCIUM ACETATE
  11. POTASSIUM CHLORIDE. [Concomitant]
     Active Substance: POTASSIUM CHLORIDE
  12. AMLODIPINE [Concomitant]
     Active Substance: AMLODIPINE BESYLATE
  13. CALCITRIOL. [Concomitant]
     Active Substance: CALCITRIOL

REACTIONS (1)
  - Pulmonary oedema [Recovered/Resolved]

NARRATIVE: CASE EVENT DATE: 20180208
